FAERS Safety Report 5196650-8 (Version None)
Quarter: 2006Q4

REPORT INFORMATION
  Report Type: 
  Country: None (occurrence: None)
  Receive Date: 20061227
  Receipt Date: 20061214
  Transmission Date: 20070319
  Serious: Yes (Hospitalization, Other)
  Sender: FDA-Public Use
  Company Number: 2005131127

PATIENT
  Age: 32 Year
  Sex: Male

DRUGS (6)
  1. NEURONTIN [Suspect]
     Indication: BIPOLAR DISORDER
     Dosage: (600 MG)
     Dates: start: 20000101
  2. NEURONTIN [Suspect]
     Indication: DEPRESSION
     Dosage: (600 MG)
     Dates: start: 20000101
  3. TRAZODONE HCL [Concomitant]
  4. CLONAZEPAM [Concomitant]
  5. FLUVOXAMINE MALEATE [Concomitant]
  6. GABITRIL [Concomitant]

REACTIONS (3)
  - DRUG INEFFECTIVE [None]
  - OVERDOSE [None]
  - SUICIDE ATTEMPT [None]
